FAERS Safety Report 21273234 (Version 5)
Quarter: 2023Q4

REPORT INFORMATION
  Report Type: Report from Study
  Country: US (occurrence: US)
  Receive Date: 20220831
  Receipt Date: 20231118
  Transmission Date: 20240110
  Serious: Yes (Other)
  Sender: FDA-Public Use
  Company Number: US-NOVARTISPH-NVSC2022US194188

PATIENT
  Age: 51 Year
  Sex: Female

DRUGS (2)
  1. GILENYA [Suspect]
     Active Substance: FINGOLIMOD HYDROCHLORIDE
     Indication: Multiple sclerosis
     Dosage: 20 MG, QD
     Route: 048
     Dates: start: 20120501, end: 20220508
  2. KESIMPTA [Suspect]
     Active Substance: OFATUMUMAB
     Indication: Multiple sclerosis
     Dosage: 20 MG, QMO
     Route: 058

REACTIONS (4)
  - Skin cancer [Recovered/Resolved]
  - Disturbance in attention [Unknown]
  - Memory impairment [Unknown]
  - Extra dose administered [Unknown]

NARRATIVE: CASE EVENT DATE: 20120501
